FAERS Safety Report 9940256 (Version 1)
Quarter: 2014Q1

REPORT INFORMATION
  Report Type: Report from Study
  Country: US (occurrence: US)
  Receive Date: 20140303
  Receipt Date: 20140303
  Transmission Date: 20141002
  Serious: No
  Sender: FDA-Public Use
  Company Number: US-ABBVIE-13P-163-1036225-00

PATIENT
  Age: 34 Year
  Sex: Female

DRUGS (13)
  1. HUMIRA [Suspect]
     Indication: RHEUMATOID ARTHRITIS
     Dates: start: 201212
  2. OMEPRAZOLE [Concomitant]
     Indication: GASTROOESOPHAGEAL REFLUX DISEASE
  3. SULFASALAZINE [Concomitant]
     Indication: RHEUMATOID ARTHRITIS
  4. CYCLOBENZAPRINE [Concomitant]
     Indication: MUSCLE SPASMS
     Dosage: AS NEEDED UP TO 3X DAILY
  5. NABUMETONE [Concomitant]
     Indication: RHEUMATOID ARTHRITIS
  6. TRAMADOL [Concomitant]
     Indication: PAIN
     Dosage: EVERY NIGHT
  7. METFORMIN [Concomitant]
     Indication: GESTATIONAL DIABETES
  8. METFORMIN [Concomitant]
     Indication: GLUCOSE TOLERANCE IMPAIRED
  9. VITAMIN E [Concomitant]
     Indication: PRODUCT USED FOR UNKNOWN INDICATION
  10. ZYRTEC [Concomitant]
     Indication: HYPERSENSITIVITY
  11. CALCIUM [Concomitant]
     Indication: PRODUCT USED FOR UNKNOWN INDICATION
  12. CYMBALTA [Concomitant]
     Indication: FIBROMYALGIA
  13. SYNTHROID [Concomitant]
     Indication: HYPOTHYROIDISM
     Dosage: EVERY AM

REACTIONS (1)
  - Injection site pain [Unknown]
